FAERS Safety Report 9604431 (Version 1)
Quarter: 2013Q4

REPORT INFORMATION
  Report Type: Spontaneous
  Country: GB (occurrence: GB)
  Receive Date: 20131008
  Receipt Date: 20131008
  Transmission Date: 20140711
  Serious: Yes (Hospitalization)
  Sender: FDA-Public Use
  Company Number: GB-ASTRAZENECA-2013SE72572

PATIENT
  Age: 83 Year
  Sex: Female

DRUGS (13)
  1. ATENOLOL [Suspect]
     Indication: HYPERTENSION
     Route: 048
  2. ATENOLOL [Suspect]
     Indication: HYPERTENSION
     Route: 048
     Dates: start: 201209
  3. ASPIRIN [Suspect]
     Route: 048
  4. AMLODIPINE [Suspect]
     Route: 065
  5. DOXAZOSIN MESILATE [Suspect]
     Route: 065
     Dates: start: 200710
  6. DOXAZOSIN MESILATE [Suspect]
     Route: 065
  7. FUROSEMIDE [Suspect]
     Route: 065
  8. BISOPROLOL [Suspect]
     Route: 065
  9. CITALOPRAM [Suspect]
     Indication: DEPRESSION
     Route: 065
     Dates: start: 201207
  10. TELMISARTAN [Suspect]
     Route: 065
     Dates: start: 200710
  11. TELMISARTAN [Suspect]
     Route: 065
  12. ANTIBIOTICS NOS [Concomitant]
  13. PENDROPIN [Concomitant]

REACTIONS (7)
  - Fluid overload [Unknown]
  - Blood cholesterol increased [Unknown]
  - Weight loss poor [Unknown]
  - Low density lipoprotein increased [Unknown]
  - Oedema [Unknown]
  - Dyspnoea [None]
  - Pulmonary congestion [Unknown]
